FAERS Safety Report 7051916-1 (Version None)
Quarter: 2010Q4

REPORT INFORMATION
  Report Type: 
  Country: None (occurrence: None)
  Receive Date: 20101019
  Receipt Date: 20101015
  Transmission Date: 20110411
  Serious: Yes (Other)
  Sender: FDA-Public Use
  Company Number: DK-ABBOTT-10P-044-0657833-00

PATIENT
  Sex: Male
  Weight: 97 kg

DRUGS (2)
  1. HUMIRA [Suspect]
     Indication: RHEUMATOID ARTHRITIS
     Dates: start: 20060201
  2. METHOTREXATE [Concomitant]
     Indication: ANKYLOSING SPONDYLITIS
     Dates: start: 20050101

REACTIONS (4)
  - BLOOD CREATININE INCREASED [None]
  - IGA NEPHROPATHY [None]
  - NEPHRITIS [None]
  - RENAL DISORDER [None]
